FAERS Safety Report 5869808-X (Version None)
Quarter: 2008Q3

REPORT INFORMATION
  Report Type: 
  Country: None (occurrence: None)
  Receive Date: 20080904
  Receipt Date: 20080825
  Transmission Date: 20090109
  Serious: Yes (Hospitalization)
  Sender: FDA-Public Use
  Company Number: NL-AMGEN-US303920

PATIENT
  Age: 55 Year
  Sex: Female

DRUGS (5)
  1. ENBREL [Suspect]
     Indication: PSORIASIS
     Route: 058
     Dates: start: 20050901
  2. PAROXETINE HCL [Concomitant]
     Route: 048
  3. OXAZEPAM [Concomitant]
     Route: 048
  4. DICLOFENAC [Concomitant]
     Route: 048
  5. COAPROVEL [Concomitant]
     Dosage: 150/12.5 MG 1 TIME PER DAY
     Route: 048

REACTIONS (1)
  - HYSTERECTOMY [None]
